FAERS Safety Report 5404156-3 (Version None)
Quarter: 2007Q3

REPORT INFORMATION
  Report Type: 
  Country: None (occurrence: None)
  Receive Date: 20070802
  Receipt Date: 20070622
  Transmission Date: 20080115
  Serious: Yes (Other)
  Sender: FDA-Public Use
  Company Number: JP-MERCK-0706USA04616

PATIENT
  Age: 82 Year
  Sex: Female
  Weight: 40 kg

DRUGS (8)
  1. HYZAAR [Suspect]
     Indication: HYPERTENSION
     Route: 048
     Dates: start: 20070523, end: 20070525
  2. COZAAR [Concomitant]
     Indication: HYPERTENSION
     Route: 048
     Dates: end: 20070522
  3. BISOPROLOL FUMARATE [Concomitant]
     Indication: HYPERTENSION
     Route: 048
     Dates: start: 20050418, end: 20070622
  4. LASIX [Concomitant]
     Indication: HYPERTENSION
     Route: 048
     Dates: end: 20070522
  5. ASPIRIN [Concomitant]
     Indication: CEREBRAL INFARCTION
     Route: 048
     Dates: start: 20070418, end: 20070622
  6. LANSOPRAZOLE [Concomitant]
     Indication: REFLUX OESOPHAGITIS
     Route: 048
     Dates: start: 20070418, end: 20070622
  7. PRORENAL [Concomitant]
     Indication: ARTERIOSCLEROSIS OBLITERANS
     Route: 048
     Dates: start: 20050511, end: 20070622
  8. NITRODERM [Concomitant]
     Indication: ANGINA PECTORIS
     Route: 061
     Dates: start: 20050418, end: 20070622

REACTIONS (1)
  - DEPRESSED LEVEL OF CONSCIOUSNESS [None]
